FAERS Safety Report 8956769 (Version 1)
Quarter: 2012Q4

REPORT INFORMATION
  Report Type: 
  Country: US (occurrence: US)
  Receive Date: 20121211
  Receipt Date: 20121211
  Transmission Date: 20130627
  Serious: Yes (Hospitalization)
  Sender: FDA-Public Use
  Company Number: US-ELI_LILLY_AND_COMPANY-US201212000312

PATIENT
  Sex: Female
  Weight: 74.83 kg

DRUGS (3)
  1. ADCIRCA [Suspect]
  2. TYVASO [Concomitant]
     Indication: PULMONARY ARTERIAL HYPERTENSION
     Dosage: 3-9 Breaths QID
     Route: 055
     Dates: start: 20120208
  3. PLAVIX [Concomitant]

REACTIONS (3)
  - Fluid retention [Unknown]
  - Pain [Unknown]
  - Dyspnoea [Unknown]
